FAERS Safety Report 19823980 (Version 1)
Quarter: 2021Q3

REPORT INFORMATION
  Report Type: Spontaneous
  Country: US (occurrence: US)
  Receive Date: 20210914
  Receipt Date: 20210914
  Transmission Date: 20211014
  Serious: No
  Sender: FDA-Public Use
  Company Number: US-STRIDES ARCOLAB LIMITED-2021SP026460

PATIENT
  Age: 63 Year
  Sex: Male

DRUGS (3)
  1. CYCLOPHOSPHAMIDE. [Suspect]
     Active Substance: CYCLOPHOSPHAMIDE
     Indication: XANTHOGRANULOMA
     Dosage: 150 MILLIGRAM, PER DAY
     Route: 065
  2. PREDNISOLONE. [Suspect]
     Active Substance: PREDNISOLONE
     Indication: XANTHOGRANULOMA
     Dosage: 80 MILLIGRAM, TAPER
     Route: 048
  3. TRIAMCINOLONE [Suspect]
     Active Substance: TRIAMCINOLONE
     Indication: XANTHOGRANULOMA
     Dosage: UNK, 5 INJECTIONS IN THE RIGHT UPPER AND LOWER LIDS AS WELL AS 3 INJECTIONS IN THE LEFT LOWER LID
     Route: 026

REACTIONS (1)
  - Drug ineffective [Unknown]
